FAERS Safety Report 10712770 (Version 3)
Quarter: 2015Q1

REPORT INFORMATION
  Report Type: Spontaneous
  Country: JP (occurrence: None)
  Receive Date: 20150113
  Receipt Date: 20150120
  Transmission Date: 20150721
  Serious: Yes (Hospitalization, Other)
  Sender: FDA-Public Use
  Company Number: ADR-2015-00055

PATIENT
  Age: 58 Year
  Sex: Male
  Weight: 52 kg

DRUGS (1)
  1. GABALON INTRATHECAL [Suspect]
     Active Substance: BACLOFEN
     Indication: CEREBRAL HAEMORRHAGE
     Dosage: SEE B5

REACTIONS (5)
  - Cerebrovascular accident [None]
  - Cerebral infarction [None]
  - Disease recurrence [None]
  - Muscle spasticity [None]
  - Unevaluable event [None]
